FAERS Safety Report 22323663 (Version 1)
Quarter: 2023Q2

REPORT INFORMATION
  Report Type: Spontaneous
  Country: US (occurrence: None)
  Receive Date: 20230512
  Receipt Date: 20230512
  Transmission Date: 20230721
  Serious: Yes (Life-Threatening, Disabling, Other)
  Sender: FDA-Public Use
  Company Number: None

PATIENT
  Age: 60 Year
  Sex: Male
  Weight: 97.98 kg

DRUGS (7)
  1. TORADOL [Suspect]
     Active Substance: KETOROLAC TROMETHAMINE
     Indication: Arthropathy
     Dosage: OTHER FREQUENCY : 2, 5 WEEKS APART;?
     Dates: start: 20211207
  2. LISINOPRIL [Concomitant]
     Active Substance: LISINOPRIL
  3. COLCHICINE [Concomitant]
     Active Substance: COLCHICINE
  4. omega-3 [Concomitant]
  5. VITAMIN D3 [Concomitant]
     Active Substance: CHOLECALCIFEROL
  6. VITAMINS [Concomitant]
     Active Substance: VITAMINS
  7. TORADOL [Suspect]
     Active Substance: KETOROLAC TROMETHAMINE
     Indication: Inflammation

REACTIONS (6)
  - Arthralgia [None]
  - Muscular weakness [None]
  - Blood pressure increased [None]
  - Loss of personal independence in daily activities [None]
  - Immobile [None]
  - Joint range of motion decreased [None]

NARRATIVE: CASE EVENT DATE: 20211207
